FAERS Safety Report 16993187 (Version 1)
Quarter: 2019Q4

REPORT INFORMATION
  Report Type: Spontaneous
  Country: US (occurrence: US)
  Receive Date: 20191105
  Receipt Date: 20191105
  Transmission Date: 20200122
  Serious: No
  Sender: FDA-Public Use
  Company Number: US-009507513-1911USA000456

PATIENT
  Age: 44 Year
  Sex: Female

DRUGS (2)
  1. PREGNYL [Suspect]
     Active Substance: CHORIOGONADOTROPIN ALFA
     Indication: INFERTILITY FEMALE
     Dosage: 10000 UNITS, WHEN DIRECTED
     Route: 030
     Dates: start: 20191025
  2. LEUPROLIDE [Suspect]
     Active Substance: LEUPROLIDE
     Dosage: UNK

REACTIONS (3)
  - Injection site reaction [Unknown]
  - Abdominal discomfort [Unknown]
  - Vaginal haemorrhage [Unknown]

NARRATIVE: CASE EVENT DATE: 20191025
